FAERS Safety Report 16536099 (Version 3)
Quarter: 2019Q3

REPORT INFORMATION
  Report Type: Spontaneous
  Country: US (occurrence: US)
  Receive Date: 20190705
  Receipt Date: 20190912
  Transmission Date: 20191004
  Serious: No
  Sender: FDA-Public Use
  Company Number: US-PFIZER INC-2019285723

PATIENT
  Age: 69 Year

DRUGS (1)
  1. GABAPENTIN. [Suspect]
     Active Substance: GABAPENTIN
     Dosage: UNK (APPROXIMATELY 12 YEARS)

REACTIONS (10)
  - Coordination abnormal [Unknown]
  - Tremor [Unknown]
  - Clumsiness [Unknown]
  - Aphasia [Unknown]
  - Weight increased [Unknown]
  - Constipation [Unknown]
  - Balance disorder [Unknown]
  - Feeling abnormal [Unknown]
  - Amnesia [Unknown]
  - Somnolence [Unknown]
